FAERS Safety Report 8208407-1 (Version None)
Quarter: 2012Q1

REPORT INFORMATION
  Report Type: 
  Country: None (occurrence: None)
  Receive Date: 20120314
  Receipt Date: 20120302
  Transmission Date: 20120608
  Serious: Yes (Other)
  Sender: FDA-Public Use
  Company Number: FR-ELI_LILLY_AND_COMPANY-FR201203001432

PATIENT
  Age: 52 Year
  Sex: Female

DRUGS (2)
  1. CISPLATIN [Concomitant]
  2. ALIMTA [Suspect]
     Indication: LUNG ADENOCARCINOMA

REACTIONS (1)
  - CEREBROVASCULAR ACCIDENT [None]
